FAERS Safety Report 24584083 (Version 2)
Quarter: 2025Q3

REPORT INFORMATION
  Report Type: Report from Study
  Country: US (occurrence: US)
  Receive Date: 20241106
  Receipt Date: 20250803
  Transmission Date: 20251020
  Serious: Yes (Other)
  Sender: ALEXION PHARMACEUTICALS
  Company Number: US-AstraZeneca-CH-00727320A

PATIENT
  Sex: Female

DRUGS (1)
  1. DAPAGLIFLOZIN [Suspect]
     Active Substance: DAPAGLIFLOZIN

REACTIONS (6)
  - Acute kidney injury [Unknown]
  - Renal impairment [Unknown]
  - Infection [Unknown]
  - Osteomyelitis [Unknown]
  - Peripheral swelling [Unknown]
  - Localised infection [Unknown]
